FAERS Safety Report 16388191 (Version 1)
Quarter: 2019Q2

REPORT INFORMATION
  Report Type: Spontaneous
  Country: RO (occurrence: RO)
  Receive Date: 20190604
  Receipt Date: 20190604
  Transmission Date: 20190711
  Serious: Yes (Other)
  Sender: FDA-Public Use
  Company Number: RO-ASTRAZENECA-2019SE81100

PATIENT
  Age: 42 Year
  Sex: Male

DRUGS (5)
  1. BETALOC [Concomitant]
     Active Substance: METOPROLOL TARTRATE
     Route: 065
  2. SORTIS [Concomitant]
     Active Substance: ATORVASTATIN
     Route: 065
  3. PRESTARIUM [Concomitant]
     Active Substance: PERINDOPRIL
     Route: 065
  4. ASA [Concomitant]
     Active Substance: ASPIRIN
     Indication: ACUTE MYOCARDIAL INFARCTION
     Route: 065
  5. BRILIQUE [Suspect]
     Active Substance: TICAGRELOR
     Indication: ACUTE MYOCARDIAL INFARCTION
     Route: 048

REACTIONS (1)
  - Myocardial infarction [Unknown]
